FAERS Safety Report 6617500-6 (Version None)
Quarter: 2010Q1

REPORT INFORMATION
  Report Type: 
  Country: None (occurrence: None)
  Receive Date: 20100308
  Receipt Date: 20100226
  Transmission Date: 20100710
  Serious: Yes (Other)
  Sender: FDA-Public Use
  Company Number: ES-JNJFOC-20100300750

PATIENT
  Age: 19 Year
  Sex: Male

DRUGS (2)
  1. HALOPERIDOL [Suspect]
     Indication: OBSESSIVE-COMPULSIVE DISORDER
     Route: 048
  2. ZELDOX [Concomitant]
     Indication: OBSESSIVE-COMPULSIVE DISORDER
     Route: 048

REACTIONS (1)
  - THROMBOPHLEBITIS [None]
